FAERS Safety Report 6271574-3 (Version None)
Quarter: 2009Q3

REPORT INFORMATION
  Report Type: 
  Country: None (occurrence: None)
  Receive Date: 20090715
  Receipt Date: 20090715
  Transmission Date: 20100115
  Serious: Yes (Disabling)
  Sender: FDA-Public Use
  Company Number: None

PATIENT
  Sex: Male
  Weight: 127.0072 kg

DRUGS (1)
  1. ZICAM COLD REMEDY [Suspect]
     Indication: NASOPHARYNGITIS
     Dosage: 2 SPRAYS 1 EACH NOSTRIL 2 TIMES NOSE
     Route: 045
     Dates: start: 20081115

REACTIONS (3)
  - DYSGEUSIA [None]
  - NERVE INJURY [None]
  - PAROSMIA [None]
